FAERS Safety Report 8614566-9 (Version None)
Quarter: 2012Q3

REPORT INFORMATION
  Report Type: 
  Country: None (occurrence: None)
  Receive Date: 20120823
  Receipt Date: 20120821
  Transmission Date: 20120928
  Serious: Yes (Other)
  Sender: FDA-Public Use
  Company Number: PHHY2012BE059391

PATIENT
  Sex: Male

DRUGS (3)
  1. MIACALCIN [Suspect]
     Indication: OSTEOPOROSIS
     Dosage: UNK UKN, UNK
     Dates: start: 20120601
  2. ALENDRONATE SODIUM [Concomitant]
  3. D-CURE [Concomitant]

REACTIONS (1)
  - RENAL IMPAIRMENT [None]
